FAERS Safety Report 7442105-7 (Version None)
Quarter: 2011Q2

REPORT INFORMATION
  Report Type: 
  Country: None (occurrence: None)
  Receive Date: 20110428
  Receipt Date: 20101109
  Transmission Date: 20111010
  Serious: Yes (Hospitalization, Other)
  Sender: FDA-Public Use
  Company Number: US-BAYER-201027940NA

PATIENT
  Age: 28 Year
  Sex: Female
  Weight: 68.027 kg

DRUGS (8)
  1. FLUOXETINE [Concomitant]
     Indication: ANXIETY
     Dosage: UNK
     Dates: start: 20040101
  2. NEURONTIN [Concomitant]
     Indication: HEADACHE
     Dosage: UNK
     Dates: start: 20040316
  3. HYDROCODONE BITARTRATE AND ACETAMINOPHEN [Concomitant]
     Indication: PAIN
     Dosage: UNK
     Dates: start: 20040623
  4. ALBUTEROL [Concomitant]
     Indication: ASTHMA
     Dosage: UNK
     Dates: start: 20030101
  5. YASMIN [Suspect]
     Indication: CONTRACEPTION
     Dosage: 1 DF, QD
     Route: 048
     Dates: start: 20040204, end: 20040401
  6. AVELOX [Concomitant]
  7. YASMIN [Suspect]
     Indication: ACNE
  8. IBUPROF [Concomitant]
     Dosage: UNK
     Dates: start: 20000101

REACTIONS (8)
  - DEEP VEIN THROMBOSIS [None]
  - MYALGIA [None]
  - HEADACHE [None]
  - FATIGUE [None]
  - PULMONARY EMBOLISM [None]
  - CHEST PAIN [None]
  - ANXIETY [None]
  - POST-TRAUMATIC STRESS DISORDER [None]
